FAERS Safety Report 21751293 (Version 1)
Quarter: 2022Q4

REPORT INFORMATION
  Report Type: Spontaneous
  Country: FR (occurrence: FR)
  Receive Date: 20221220
  Receipt Date: 20221220
  Transmission Date: 20230113
  Serious: Yes (Other)
  Sender: FDA-Public Use
  Company Number: FR-VALIDUS PHARMACEUTICALS LLC-FR-VDP-2022-015871

PATIENT

DRUGS (2)
  1. CEFOTAXIME SODIUM [Suspect]
     Active Substance: CEFOTAXIME SODIUM
     Indication: Pyelonephritis
     Dosage: UNK
     Route: 042
     Dates: start: 20220905, end: 20220908
  2. AMOXICILLIN [Suspect]
     Active Substance: AMOXICILLIN
     Indication: Pyelonephritis
     Dosage: UNK
     Route: 048
     Dates: start: 20220908, end: 20220915

REACTIONS (2)
  - Drug eruption [Recovering/Resolving]
  - Eosinophilia [Unknown]

NARRATIVE: CASE EVENT DATE: 20221002
